FAERS Safety Report 4331681-9 (Version None)
Quarter: 2004Q1

REPORT INFORMATION
  Report Type: 
  Country: None (occurrence: None)
  Receive Date: 20040329
  Receipt Date: 20040319
  Transmission Date: 20041129
  Serious: Yes (Death, Hospitalization)
  Sender: FDA-Public Use
  Company Number: UKP04000113

PATIENT
  Age: 73 Year
  Sex: Female

DRUGS (2)
  1. DIDRONEL [Suspect]
     Dosage: 5 MG, 2/WEEK
  2. METHOTREXATE [Suspect]
     Indication: RHEUMATOID ARTHRITIS
     Dosage: 15 MG, 1/WEEK

REACTIONS (16)
  - ASTHENIA [None]
  - BLOOD ALBUMIN DECREASED [None]
  - BUNDLE BRANCH BLOCK RIGHT [None]
  - COLD SWEAT [None]
  - DEHYDRATION [None]
  - DYSPNOEA EXERTIONAL [None]
  - GENERAL PHYSICAL HEALTH DETERIORATION [None]
  - MOBILITY DECREASED [None]
  - OEDEMA PERIPHERAL [None]
  - PNEUMOCYSTIS CARINII INFECTION [None]
  - PNEUMONIA [None]
  - PNEUMONITIS [None]
  - TACHYCARDIA [None]
  - TACHYPNOEA [None]
  - URINARY TRACT INFECTION [None]
  - WEIGHT DECREASED [None]
